FAERS Safety Report 4674035-8 (Version None)
Quarter: 2005Q2

REPORT INFORMATION
  Report Type: 
  Country: None (occurrence: None)
  Receive Date: 20050525
  Receipt Date: 20050513
  Transmission Date: 20051028
  Serious: Yes (Life-Threatening, Other)
  Sender: FDA-Public Use
  Company Number: 2005075394

PATIENT
  Age: 73 Year
  Sex: Male

DRUGS (5)
  1. SORTIS (ATORVASTATIN) [Suspect]
     Indication: CORONARY ARTERY DISEASE
     Dosage: 30 MG, ORAL
     Route: 048
     Dates: end: 20050506
  2. SORTIS (ATORVASTATIN) [Suspect]
     Indication: HYPERCHOLESTEROLAEMIA
     Dosage: 30 MG, ORAL
     Route: 048
     Dates: end: 20050506
  3. ACE INHIBITOR NOS (ACE INHIBITOR NOS) [Concomitant]
  4. PLAVIX [Concomitant]
  5. ACETYLSALICYLIC ACID SRT [Concomitant]

REACTIONS (3)
  - PACEMAKER COMPLICATION [None]
  - PROSTATITIS [None]
  - RHABDOMYOLYSIS [None]
